FAERS Safety Report 19376725 (Version 2)
Quarter: 2021Q3

REPORT INFORMATION
  Report Type: Spontaneous
  Country: PK (occurrence: PK)
  Receive Date: 20210604
  Receipt Date: 20210728
  Transmission Date: 20211014
  Serious: Yes (Other)
  Sender: FDA-Public Use
  Company Number: NVSC2021PK122365

PATIENT
  Age: 44 Year
  Sex: Male

DRUGS (1)
  1. FRAIZERON [Suspect]
     Active Substance: SECUKINUMAB
     Indication: PSORIASIS
     Dosage: 150 MG, QMO (LOADING FOR 04 WEEKS WITH 150 MG AND THEN 150 MG PER MONTH MAINTENANCE)
     Route: 058
     Dates: start: 20201203, end: 20210511

REACTIONS (1)
  - COVID-19 [Not Recovered/Not Resolved]

NARRATIVE: CASE EVENT DATE: 20210525
